FAERS Safety Report 9685491 (Version 2)
Quarter: 2013Q4

REPORT INFORMATION
  Report Type: Report from Study
  Country: CA (occurrence: CA)
  Receive Date: 20131113
  Receipt Date: 20131113
  Transmission Date: 20140711
  Serious: Yes (Other)
  Sender: FDA-Public Use
  Company Number: CA-UCBSA-099400

PATIENT
  Age: 77 Year
  Sex: Female
  Weight: 53 kg

DRUGS (1)
  1. CIMZIA [Suspect]
     Indication: RHEUMATOID ARTHRITIS
     Dosage: DOSE: 400 MG WEEKS 0-2-4
     Route: 058
     Dates: start: 20130917, end: 2013

REACTIONS (8)
  - Hypotension [Recovered/Resolved]
  - Chest pain [Recovered/Resolved]
  - Respiratory tract infection [Recovering/Resolving]
  - Influenza like illness [Recovering/Resolving]
  - Rash pruritic [Not Recovered/Not Resolved]
  - Chest discomfort [Recovering/Resolving]
  - Nausea [Not Recovered/Not Resolved]
  - Paraesthesia [Recovered/Resolved]
